FAERS Safety Report 10789833 (Version 1)
Quarter: 2015Q1

REPORT INFORMATION
  Report Type: Spontaneous
  Country: US (occurrence: None)
  Receive Date: 20150211
  Receipt Date: 20150211
  Transmission Date: 20150721
  Serious: Yes (Life-Threatening, Hospitalization)
  Sender: FDA-Public Use
  Company Number: None

PATIENT
  Age: 63 Year
  Sex: Male
  Weight: 77.11 kg

DRUGS (5)
  1. ASPIRIN. [Concomitant]
     Active Substance: ASPIRIN
  2. AMLODIPINE BESYLATE. [Concomitant]
     Active Substance: AMLODIPINE BESYLATE
  3. CARVEDILOL. [Concomitant]
     Active Substance: CARVEDILOL
  4. LISINOPRIL TAB 40MG GENERIC NAME 7498-4068542 [Suspect]
     Active Substance: LISINOPRIL
     Indication: HYPERTENSION
     Dosage: 60 ONCE A DAY! BY MOUTH
     Route: 048
     Dates: start: 20111130, end: 20150111
  5. VIT MULTI [Concomitant]

REACTIONS (2)
  - Asthenia [None]
  - Angioedema [None]

NARRATIVE: CASE EVENT DATE: 20150111
